FAERS Safety Report 16118308 (Version 1)
Quarter: 2019Q1

REPORT INFORMATION
  Report Type: Spontaneous
  Country: US (occurrence: US)
  Receive Date: 20190326
  Receipt Date: 20190326
  Transmission Date: 20190418
  Serious: Yes (Other)
  Sender: FDA-Public Use
  Company Number: US-009507513-1903USA007991

PATIENT
  Age: 17 Year
  Sex: Female
  Weight: 64 kg

DRUGS (1)
  1. NEXPLANON [Suspect]
     Active Substance: ETONOGESTREL
     Indication: CONTRACEPTION
     Dosage: 1 LEFT ARM-IMPLANT
     Route: 059
     Dates: start: 20170519

REACTIONS (3)
  - Device dislocation [Not Recovered/Not Resolved]
  - Product prescribing error [Unknown]
  - Pain in extremity [Not Recovered/Not Resolved]
